FAERS Safety Report 21443939 (Version 7)
Quarter: 2022Q4

REPORT INFORMATION
  Report Type: Spontaneous
  Country: US (occurrence: US)
  Receive Date: 20221012
  Receipt Date: 20221205
  Transmission Date: 20230113
  Serious: Yes (Other)
  Sender: FDA-Public Use
  Company Number: US-UNITED THERAPEUTICS-UNT-2022-023488

PATIENT
  Sex: Female

DRUGS (3)
  1. TYVASO [Suspect]
     Active Substance: TREPROSTINIL
     Indication: Pulmonary arterial hypertension
     Dosage: UNK
     Dates: start: 20220914, end: 20221011
  2. TYVASO [Suspect]
     Active Substance: TREPROSTINIL
     Dosage: 24 ?G, QID
     Dates: start: 202209
  3. TYVASO [Suspect]
     Active Substance: TREPROSTINIL
     Dosage: 36 ?G, QID
     Dates: start: 2022

REACTIONS (15)
  - Ascites [Unknown]
  - Cough [Unknown]
  - Dizziness [Unknown]
  - Peripheral swelling [Unknown]
  - Fluid retention [Not Recovered/Not Resolved]
  - Dyspnoea [Unknown]
  - Headache [Unknown]
  - Abdominal distension [Unknown]
  - Palpitations [Unknown]
  - Nausea [Unknown]
  - Glossitis [Recovering/Resolving]
  - Secretion discharge [Unknown]
  - Device malfunction [Unknown]
  - Product quality issue [Unknown]
  - Device malfunction [Unknown]

NARRATIVE: CASE EVENT DATE: 20220101
